FAERS Safety Report 21022380 (Version 2)
Quarter: 2022Q3

REPORT INFORMATION
  Report Type: Spontaneous
  Country: AR (occurrence: AR)
  Receive Date: 20220629
  Receipt Date: 20220713
  Transmission Date: 20221026
  Serious: Yes (Other)
  Sender: FDA-Public Use
  Company Number: AR-NOVARTISPH-NVSC2022AR145575

PATIENT
  Sex: Male

DRUGS (5)
  1. DIOVAN [Suspect]
     Active Substance: VALSARTAN
     Indication: Hypertension
     Dosage: 1 DOSAGE FORM (80), QD, STARTED 12 YEARS AGO
     Route: 065
  2. DIOVAN [Suspect]
     Active Substance: VALSARTAN
     Dosage: 1 DOSAGE FORM (160), QD
     Route: 065
     Dates: start: 202205
  3. DIOVAN [Suspect]
     Active Substance: VALSARTAN
     Dosage: 160 MG, Q12H, WHICH CONTINUED FOR A MONTH, AND THEN 15 DAYS AGO
     Route: 065
  4. DIOVAN [Suspect]
     Active Substance: VALSARTAN
     Dosage: 320 MG, QD, 15 DAYS AGO
     Route: 065
  5. ALPRAZOLAM [Concomitant]
     Active Substance: ALPRAZOLAM
     Indication: Product used for unknown indication
     Dosage: 0.25 MG
     Route: 065

REACTIONS (3)
  - Carotid artery occlusion [Unknown]
  - Choroidal effusion [Unknown]
  - Hypertension [Unknown]
